FAERS Safety Report 12730180 (Version 2)
Quarter: 2016Q4

REPORT INFORMATION
  Report Type: Spontaneous
  Country: US (occurrence: US)
  Receive Date: 20160909
  Receipt Date: 20161019
  Transmission Date: 20170207
  Serious: No
  Sender: FDA-Public Use
  Company Number: US-ASTRAZENECA-2016SE91438

PATIENT

DRUGS (1)
  1. NEXIUM [Suspect]
     Active Substance: ESOMEPRAZOLE MAGNESIUM
     Dosage: UNKNOWN
     Route: 048

REACTIONS (4)
  - Renal disorder [Unknown]
  - Gastrooesophageal reflux disease [Unknown]
  - Intentional product misuse [Unknown]
  - Drug dose omission [Unknown]
